FAERS Safety Report 6015281-0 (Version None)
Quarter: 2008Q4

REPORT INFORMATION
  Report Type: 
  Country: None (occurrence: None)
  Receive Date: 20081222
  Receipt Date: 20081209
  Transmission Date: 20090506
  Serious: Yes (Hospitalization)
  Sender: FDA-Public Use
  Company Number: FR-BAYER-200832682GPV

PATIENT
  Age: 52 Year
  Sex: Male
  Weight: 86 kg

DRUGS (9)
  1. MABCAMPATH [Suspect]
     Indication: CHRONIC LYMPHOCYTIC LEUKAEMIA
     Route: 058
     Dates: start: 20081006, end: 20081008
  2. FLUDARA [Suspect]
     Indication: CHRONIC LYMPHOCYTIC LEUKAEMIA
     Route: 048
     Dates: start: 20081006, end: 20081007
  3. FLUDARA [Suspect]
     Route: 048
     Dates: start: 20081009, end: 20081009
  4. ENDOXAN [Suspect]
     Indication: CHRONIC LYMPHOCYTIC LEUKAEMIA
     Route: 048
     Dates: start: 20081006, end: 20081007
  5. ENDOXAN [Suspect]
     Route: 048
     Dates: start: 20081009, end: 20081009
  6. BACTRIM [Concomitant]
     Indication: INFECTION PROPHYLAXIS
     Route: 048
     Dates: start: 20081006
  7. ZELITREX [Concomitant]
     Indication: ANTIVIRAL PROPHYLAXIS
     Route: 065
     Dates: start: 20081006
  8. ZYLORIC [Concomitant]
     Indication: PROPHYLAXIS
     Route: 065
     Dates: start: 20081006
  9. PRIMPERAN TAB [Concomitant]
     Indication: PROPHYLAXIS
     Route: 065
     Dates: start: 20081006

REACTIONS (7)
  - CHILLS [None]
  - CYTOKINE RELEASE SYNDROME [None]
  - DERMATITIS ALLERGIC [None]
  - INJECTION SITE RASH [None]
  - ORTHOSTATIC HYPOTENSION [None]
  - PYREXIA [None]
  - VOMITING [None]
